FAERS Safety Report 8836415 (Version 1)
Quarter: 2012Q4

REPORT INFORMATION
  Report Type: 
  Country: US (occurrence: US)
  Receive Date: 20121011
  Receipt Date: 20121011
  Transmission Date: 20130627
  Serious: No
  Sender: FDA-Public Use
  Company Number: US-NOVEN-12US005328

PATIENT
  Sex: Female

DRUGS (5)
  1. FENTANYL [Suspect]
     Indication: PAIN
     Dosage: 25 mcg/hr, 1 patch every 3 days
     Route: 062
     Dates: start: 20120907
  2. LIDODERM [Concomitant]
     Indication: PRODUCT USED FOR UNKNOWN INDICATION
     Route: 062
  3. KLONOPIN [Concomitant]
     Indication: PRODUCT USED FOR UNKNOWN INDICATION
     Route: 048
  4. OXYCONTIN [Concomitant]
     Indication: PRODUCT USED FOR UNKNOWN INDICATION
     Route: 048
  5. VITAMINS [Concomitant]
     Indication: PRODUCT USED FOR UNKNOWN INDICATION

REACTIONS (2)
  - Inadequate analgesia [Not Recovered/Not Resolved]
  - Fatigue [Not Recovered/Not Resolved]
